FAERS Safety Report 5280092-0 (Version None)
Quarter: 2007Q1

REPORT INFORMATION
  Report Type: 
  Country: None (occurrence: None)
  Receive Date: 20061229
  Receipt Date: 20061009
  Transmission Date: 20070707
  Serious: Yes (Other)
  Sender: FDA-Public Use
  Company Number: 2006UW19560

PATIENT
  Age: 75 Year
  Sex: Male
  Weight: 83.914 kg

DRUGS (1)
  1. CRESTOR [Suspect]
     Indication: HYPERCHOLESTEROLAEMIA
     Dosage: 5 MG QOD PO
     Route: 048

REACTIONS (3)
  - ASTHENIA [None]
  - EYE DISORDER [None]
  - MUSCLE SPASMS [None]
